FAERS Safety Report 5112453-4 (Version None)
Quarter: 2006Q3

REPORT INFORMATION
  Report Type: 
  Country: None (occurrence: None)
  Receive Date: 20060922
  Receipt Date: 20060324
  Transmission Date: 20061208
  Serious: Yes (Other)
  Sender: FDA-Public Use
  Company Number: US-BAYER-200611304BCC

PATIENT
  Sex: Female
  Weight: 58 kg

DRUGS (2)
  1. ALEVE [Suspect]
     Indication: TRIGEMINAL NERVE DISORDER
     Dosage: UNIT DOSE: 220 MG
     Route: 048
  2. ALEVE [Suspect]
     Route: 048

REACTIONS (8)
  - ABDOMINAL PAIN UPPER [None]
  - BLINDNESS [None]
  - MUSCLE SPASMS [None]
  - OEDEMA PERIPHERAL [None]
  - URINARY INCONTINENCE [None]
  - URINARY RETENTION [None]
  - VISION BLURRED [None]
  - VISUAL DISTURBANCE [None]
